FAERS Safety Report 19462572 (Version 1)
Quarter: 2021Q2

REPORT INFORMATION
  Report Type: Spontaneous
  Country: FR (occurrence: FR)
  Receive Date: 20210625
  Receipt Date: 20210625
  Transmission Date: 20210717
  Serious: Yes (Hospitalization)
  Sender: FDA-Public Use
  Company Number: FR-ALLERGAN-2123733US

PATIENT
  Sex: Female
  Weight: 54 kg

DRUGS (3)
  1. HYDROXYZINE (CHLORHYDRATE D^) [Suspect]
     Active Substance: HYDROXYZINE HYDROCHLORIDE
     Indication: INTENTIONAL OVERDOSE
     Dosage: UNK, NP
     Dates: start: 20210421, end: 20210421
  2. VARENICLINE [Suspect]
     Active Substance: VARENICLINE
     Indication: INTENTIONAL OVERDOSE
     Dosage: UNK,  NP
     Dates: start: 20210421, end: 20210421
  3. ESCITALOPRAM OXALATE ? BP [Suspect]
     Active Substance: ESCITALOPRAM OXALATE
     Indication: PRODUCT USED FOR UNKNOWN INDICATION
     Dosage: ACTUAL: OVERDOSE: DOSE UNKNOWN
     Dates: start: 20210421, end: 20210421

REACTIONS (3)
  - Coma [Recovered/Resolved]
  - Poisoning deliberate [Recovered/Resolved]
  - Intentional overdose [Unknown]

NARRATIVE: CASE EVENT DATE: 20210421
